FAERS Safety Report 23993958 (Version 1)
Quarter: 2024Q2

REPORT INFORMATION
  Report Type: Spontaneous
  Country: US (occurrence: None)
  Receive Date: 20240618
  Receipt Date: 20240618
  Transmission Date: 20240716
  Serious: Yes (Other)
  Sender: FDA-Public Use
  Company Number: None

PATIENT
  Age: 40 Year
  Sex: Male
  Weight: 150.75 kg

DRUGS (1)
  1. PRIVIGEN [Suspect]
     Active Substance: HUMAN IMMUNOGLOBULIN G
     Indication: Chronic inflammatory demyelinating polyradiculoneuropathy
     Dosage: 40 G GRAM(S) Q3WEEKS INTRAVENOUS
     Route: 042
     Dates: start: 20240618

REACTIONS (3)
  - Dyspnoea [None]
  - Uveitis [None]
  - Infusion related reaction [None]

NARRATIVE: CASE EVENT DATE: 20240618
